FAERS Safety Report 23612649 (Version 1)
Quarter: 2024Q1

REPORT INFORMATION
  Report Type: Spontaneous
  Country: US (occurrence: US)
  Receive Date: 20240308
  Receipt Date: 20240308
  Transmission Date: 20240409
  Serious: No
  Sender: FDA-Public Use
  Company Number: US-MYOVANT SCIENCES GMBH-2023MYSCI1100743

PATIENT
  Age: 81 Year
  Sex: Male

DRUGS (6)
  1. ORGOVYX [Suspect]
     Active Substance: RELUGOLIX
     Indication: Prostate cancer
     Dosage: 120 MILLIGRAM, QD
     Route: 048
     Dates: end: 20231120
  2. METOPROLOL [Concomitant]
     Active Substance: METOPROLOL
     Indication: Cardiac disorder
     Dosage: 100 MILLIGRAM, BID
     Route: 065
  3. ELIQUIS [Concomitant]
     Active Substance: APIXABAN
     Indication: Coagulopathy
     Dosage: 5 MILLIGRAM, BID
     Route: 065
  4. ATORVASTATIN [Concomitant]
     Active Substance: ATORVASTATIN
     Indication: Blood cholesterol
     Dosage: 80 MILLIGRAM, QD
     Route: 065
  5. METAMUCIL                          /00029101/ [Concomitant]
     Indication: Blood cholesterol
     Dosage: UNK, BID
     Route: 065
  6. ERGOCALCIFEROL [Concomitant]
     Active Substance: ERGOCALCIFEROL
     Indication: Product used for unknown indication
     Dosage: 1000 UNIT, BID
     Route: 065

REACTIONS (1)
  - Therapy interrupted [Unknown]

NARRATIVE: CASE EVENT DATE: 20231121
